FAERS Safety Report 20125287 (Version 1)
Quarter: 2021Q4

REPORT INFORMATION
  Report Type: Other
  Country: PT (occurrence: None)
  Receive Date: 20211129
  Receipt Date: 20211129
  Transmission Date: 20220304
  Serious: Yes (Other)
  Sender: FDA-Public Use
  Company Number: PT-ROCHE-2967664

PATIENT
  Age: 78 Year
  Sex: Female

DRUGS (3)
  1. RITUXIMAB [Suspect]
     Active Substance: RITUXIMAB
     Indication: Immune thrombocytopenia
     Route: 065
  2. HUMAN IMMUNOGLOBULIN G [Concomitant]
     Active Substance: HUMAN IMMUNOGLOBULIN G
     Route: 042
  3. ELTROMBOPAG [Concomitant]
     Active Substance: ELTROMBOPAG
     Indication: Thrombocytopenia

REACTIONS (8)
  - Pneumonia streptococcal [Unknown]
  - Encephalitis [Unknown]
  - Meningitis aseptic [Unknown]
  - Meningitis [Unknown]
  - Bacterial infection [Unknown]
  - Off label use [Unknown]
  - Urinary tract infection [Unknown]
  - Tetanus [Unknown]
